FAERS Safety Report 22046170 (Version 4)
Quarter: 2023Q2

REPORT INFORMATION
  Report Type: Spontaneous
  Country: US (occurrence: US)
  Receive Date: 20230228
  Receipt Date: 20230414
  Transmission Date: 20230721
  Serious: No
  Sender: FDA-Public Use
  Company Number: US-PFIZER INC-202300080824

PATIENT
  Age: 34 Year
  Sex: Female
  Weight: 43.09 kg

DRUGS (1)
  1. GENOTROPIN [Suspect]
     Active Substance: SOMATROPIN
     Indication: Hypopituitarism
     Dosage: 0.3 ML, DAILY

REACTIONS (5)
  - Myositis [Unknown]
  - Drug dose omission by device [Not Recovered/Not Resolved]
  - Device mechanical issue [Unknown]
  - Device breakage [Unknown]
  - Expired device used [Unknown]
